FAERS Safety Report 9309058 (Version 2)
Quarter: 2013Q3

REPORT INFORMATION
  Report Type: Spontaneous
  Country: US (occurrence: US)
  Receive Date: 20130525
  Receipt Date: 20130730
  Transmission Date: 20140515
  Serious: No
  Sender: FDA-Public Use
  Company Number: US-009507513-1305USA010220

PATIENT
  Age: 29 Year
  Sex: Female

DRUGS (3)
  1. NEXPLANON [Suspect]
     Indication: CONTRACEPTION
     Dosage: 1 DF, UNK
     Route: 059
     Dates: start: 20130419, end: 20130723
  2. LIDOCAINE [Suspect]
     Dosage: UNK
  3. EPINEPHRINE [Suspect]
     Dosage: UNK

REACTIONS (6)
  - Infection [Unknown]
  - Injection site scab [Unknown]
  - Implant site pain [Recovering/Resolving]
  - Implant site fibrosis [Unknown]
  - Discomfort [Unknown]
  - Medical device complication [Unknown]
